FAERS Safety Report 19824070 (Version 4)
Quarter: 2021Q4

REPORT INFORMATION
  Report Type: Spontaneous
  Country: JP (occurrence: JP)
  Receive Date: 20210913
  Receipt Date: 20211013
  Transmission Date: 20220303
  Serious: Yes (Death, Other)
  Sender: FDA-Public Use
  Company Number: JP-MSD-M2021-21343

PATIENT
  Age: 78 Year
  Sex: Male

DRUGS (1)
  1. KEYTRUDA [Suspect]
     Active Substance: PEMBROLIZUMAB
     Indication: Hypopharyngeal cancer recurrent
     Dosage: 200 MILLIGRAM, Q3W
     Route: 041
     Dates: start: 20210831

REACTIONS (3)
  - Death [Fatal]
  - Respiratory failure [Unknown]
  - Respiratory tract oedema [Recovering/Resolving]

NARRATIVE: CASE EVENT DATE: 20210901
